FAERS Safety Report 21894977 (Version 7)
Quarter: 2023Q1

REPORT INFORMATION
  Report Type: Spontaneous
  Country: JP (occurrence: JP)
  Receive Date: 20230122
  Receipt Date: 20230327
  Transmission Date: 20230418
  Serious: Yes (Other)
  Sender: FDA-Public Use
  Company Number: JP-BEH-2023154206

PATIENT
  Age: 71 Year
  Sex: Male
  Weight: 52 kg

DRUGS (13)
  1. IDELVION [Suspect]
     Active Substance: COAGULATION FACTOR IX RECOMBINANT HUMAN
     Indication: Factor IX deficiency
     Dosage: UNK INTERNATIONAL UNIT
     Route: 042
  2. IDELVION [Suspect]
     Active Substance: COAGULATION FACTOR IX RECOMBINANT HUMAN
     Indication: Factor IX deficiency
     Dosage: UNK INTERNATIONAL UNIT
     Route: 042
  3. IDELVION [Suspect]
     Active Substance: COAGULATION FACTOR IX RECOMBINANT HUMAN
     Dosage: 2000 INTERNATIONAL UNIT, 1 TIME IN 10 DAYS
     Route: 042
     Dates: end: 202207
  4. IDELVION [Suspect]
     Active Substance: COAGULATION FACTOR IX RECOMBINANT HUMAN
     Dosage: 2000 INTERNATIONAL UNIT, 1 TIME IN 10 DAYS
     Route: 042
     Dates: end: 202207
  5. IDELVION [Suspect]
     Active Substance: COAGULATION FACTOR IX RECOMBINANT HUMAN
     Dosage: 2000 INTERNATIONAL UNIT, 10 DAYS
     Route: 042
     Dates: end: 202207
  6. IDELVION [Suspect]
     Active Substance: COAGULATION FACTOR IX RECOMBINANT HUMAN
     Dosage: 2000 INTERNATIONAL UNIT, 10 DAYS
     Route: 042
     Dates: end: 202207
  7. IDELVION [Suspect]
     Active Substance: COAGULATION FACTOR IX RECOMBINANT HUMAN
     Dosage: 3500 INTERNATIONAL UNIT, QOW
     Route: 042
     Dates: end: 202212
  8. IDELVION [Suspect]
     Active Substance: COAGULATION FACTOR IX RECOMBINANT HUMAN
     Dosage: 3500 INTERNATIONAL UNIT, QOW
     Route: 042
     Dates: end: 202212
  9. IDELVION [Suspect]
     Active Substance: COAGULATION FACTOR IX RECOMBINANT HUMAN
     Dosage: 2000 INTERNATIONAL UNIT, QW
     Route: 042
  10. IDELVION [Suspect]
     Active Substance: COAGULATION FACTOR IX RECOMBINANT HUMAN
     Dosage: 2000 INTERNATIONAL UNIT, QW
     Route: 042
  11. NOVACT M FUJISAWA [Concomitant]
     Dosage: 3500 INTERNATIONAL UNIT
     Dates: start: 20221129
  12. NOVACT M FUJISAWA [Concomitant]
     Dosage: 3500 INTERNATIONAL UNIT
     Dates: start: 20221130
  13. NOVACT M FUJISAWA [Concomitant]
     Dosage: 2000 INTERNATIONAL UNIT
     Dates: start: 20230105

REACTIONS (8)
  - Osteoarthritis [Unknown]
  - Haemarthrosis [Recovered/Resolved]
  - Off label use [Recovered/Resolved]
  - Cellulitis [Recovered/Resolved]
  - Off label use [Recovered/Resolved]
  - Haemarthrosis [Recovered/Resolved]
  - Epistaxis [Recovered/Resolved]
  - Haemarthrosis [Recovered/Resolved]

NARRATIVE: CASE EVENT DATE: 20220325
